FAERS Safety Report 7084897-5 (Version None)
Quarter: 2010Q4

REPORT INFORMATION
  Report Type: 
  Country: None (occurrence: None)
  Receive Date: 20101105
  Receipt Date: 20101026
  Transmission Date: 20110411
  Serious: Yes (Other)
  Sender: FDA-Public Use
  Company Number: US-TEVA-253052USA

PATIENT

DRUGS (1)
  1. ADENOSINE [Suspect]
     Indication: CARDIAC ARREST

REACTIONS (3)
  - ANAPHYLACTIC REACTION [None]
  - DEVICE OCCLUSION [None]
  - DYSPNOEA [None]
